FAERS Safety Report 5681035-8 (Version None)
Quarter: 2008Q1

REPORT INFORMATION
  Report Type: 
  Country: None (occurrence: None)
  Receive Date: 20080325
  Receipt Date: 20080314
  Transmission Date: 20080703
  Serious: Yes (Other)
  Sender: FDA-Public Use
  Company Number: 2008SP005407

PATIENT
  Age: 69 Year
  Sex: Female

DRUGS (5)
  1. MIRALAX [Suspect]
     Indication: CONSTIPATION
     Dosage: 17 GM; QD; PO
     Route: 048
     Dates: start: 20080306, end: 20080312
  2. LESCOL (CON.) [Concomitant]
  3. CARDIA (CON.) [Concomitant]
  4. ZYRTEC (CON.) [Concomitant]
  5. PRILOSEC (CON.) [Concomitant]

REACTIONS (2)
  - HAEMATOCHEZIA [None]
  - MUSCLE SPASMS [None]
